FAERS Safety Report 4863844-8 (Version None)
Quarter: 2005Q4

REPORT INFORMATION
  Report Type: 
  Country: None (occurrence: None)
  Receive Date: 20051222
  Receipt Date: 20051011
  Transmission Date: 20060501
  Serious: No
  Sender: FDA-Public Use
  Company Number: US-GLAXOSMITHKLINE-A0577843A

PATIENT
  Age: 78 Year
  Sex: Male

DRUGS (9)
  1. FLONASE [Suspect]
     Dosage: 2SPR TWICE PER DAY
     Route: 045
  2. LIPITOR [Concomitant]
  3. TOPROL-XL [Concomitant]
  4. DIOVAN [Concomitant]
  5. ALLOPURINOL [Concomitant]
  6. SYNTHROID [Concomitant]
  7. VASOTEC [Concomitant]
  8. GLUCOSAMINE [Concomitant]
  9. ADVAIR DISKUS 250/50 [Concomitant]

REACTIONS (5)
  - DRUG WITHDRAWAL SYNDROME [None]
  - DYSPHONIA [None]
  - OVERDOSE [None]
  - PHARYNGOLARYNGEAL PAIN [None]
  - STOMATITIS [None]
